FAERS Safety Report 7850686-4 (Version None)
Quarter: 2011Q4

REPORT INFORMATION
  Report Type: 
  Country: None (occurrence: None)
  Receive Date: 20111024
  Receipt Date: 20111009
  Transmission Date: 20120403
  Serious: Yes (Other)
  Sender: FDA-Public Use
  Company Number: 7088645

PATIENT
  Age: 35 Year
  Sex: Female

DRUGS (2)
  1. CRINONE [Concomitant]
  2. LEVOTHYROXINE SODIUM [Suspect]
     Indication: HYPOTHYROIDISM
     Dosage: 12.5 MCG (12.5 MCG,1 IN 1 D) ORAL, 62.5 MCG (62.5 MCG,1 IN 1 D) ORAL
     Route: 048
     Dates: start: 20090101, end: 20110101

REACTIONS (2)
  - MATERNAL EXPOSURE DURING PREGNANCY [None]
  - ABORTION SPONTANEOUS [None]
